APPROVED DRUG PRODUCT: AMBRISENTAN
Active Ingredient: AMBRISENTAN
Strength: 5MG
Dosage Form/Route: TABLET;ORAL
Application: A209509 | Product #001
Applicant: PH HEALTH LTD
Approved: Apr 10, 2019 | RLD: No | RS: No | Type: DISCN